FAERS Safety Report 11870917 (Version 1)
Quarter: 2015Q4

REPORT INFORMATION
  Report Type: Spontaneous
  Country: US (occurrence: None)
  Receive Date: 20151224
  Receipt Date: 20151224
  Transmission Date: 20160305
  Serious: Yes (Hospitalization)
  Sender: FDA-Public Use
  Company Number: None

PATIENT
  Age: 62 Year
  Sex: Male

DRUGS (2)
  1. METHADONE [Suspect]
     Active Substance: METHADONE HYDROCHLORIDE
     Indication: DETOXIFICATION
     Route: 048
     Dates: start: 20150812, end: 20150812
  2. LORAZEPAM. [Suspect]
     Active Substance: LORAZEPAM
     Route: 042

REACTIONS (8)
  - Musculoskeletal disorder [None]
  - Depressed level of consciousness [None]
  - Fall [None]
  - Hypotension [None]
  - Somnolence [None]
  - Generalised tonic-clonic seizure [None]
  - Mental status changes [None]
  - Gait disturbance [None]

NARRATIVE: CASE EVENT DATE: 20150812
